FAERS Safety Report 18243938 (Version 1)
Quarter: 2020Q3

REPORT INFORMATION
  Report Type: Report from Study
  Country: IN (occurrence: IN)
  Receive Date: 20200908
  Receipt Date: 20200908
  Transmission Date: 20201103
  Serious: Yes (Death, Hospitalization)
  Sender: FDA-Public Use
  Company Number: NVSC2019IN018225

PATIENT
  Age: 36 Year
  Sex: Male
  Weight: 50 kg

DRUGS (1)
  1. TASIGNA [Suspect]
     Active Substance: NILOTINIB
     Indication: CHRONIC MYELOID LEUKAEMIA
     Dosage: 400 MG, BID
     Route: 048
     Dates: end: 20200510

REACTIONS (3)
  - Asthenia [Unknown]
  - Multiple organ dysfunction syndrome [Fatal]
  - Jaundice [Recovering/Resolving]

NARRATIVE: CASE EVENT DATE: 20191009
